FAERS Safety Report 9531005 (Version 1)
Quarter: 2013Q3

REPORT INFORMATION
  Report Type: Spontaneous
  Country: US (occurrence: US)
  Receive Date: 20130918
  Receipt Date: 20130918
  Transmission Date: 20140515
  Serious: No
  Sender: FDA-Public Use
  Company Number: US-B.I. PHARMACEUTICALS,INC./RIDGEFIELD-2013-BI-28293BP

PATIENT
  Sex: Male

DRUGS (2)
  1. MIRAPEX [Suspect]
     Indication: RESTLESS LEGS SYNDROME
     Dosage: 1.5 MG
     Route: 048
     Dates: start: 2008
  2. OXYCONTIN [Concomitant]
     Indication: BACK PAIN
     Dosage: 80 MG
     Route: 048

REACTIONS (2)
  - Laryngitis [Not Recovered/Not Resolved]
  - Off label use [Not Recovered/Not Resolved]
